FAERS Safety Report 4728213-X (Version None)
Quarter: 2005Q3

REPORT INFORMATION
  Report Type: 
  Country: None (occurrence: None)
  Receive Date: 20050728
  Receipt Date: 20050728
  Transmission Date: 20060218
  Serious: Yes (Hospitalization)
  Sender: FDA-Public Use
  Company Number: None

PATIENT
  Sex: Female
  Weight: 110.5 kg

DRUGS (8)
  1. ADRIAMYCIN   132MG [Suspect]
     Indication: BREAST CANCER
     Dosage: 60   MG/M2   INTRAVENOU
     Route: 042
     Dates: start: 20050524, end: 20050705
  2. CYTOXAN [Suspect]
     Dosage: 600    MG/M2   INTRAVENOU
     Route: 042
     Dates: start: 20050524, end: 20050705
  3. ATENOLOL [Concomitant]
  4. LISINOPRIL AND HYDROCHLOROTHIAZIDE [Concomitant]
  5. OXYCODONE [Concomitant]
  6. ZYRTEC [Concomitant]
  7. PRILOSEC [Concomitant]
  8. CELEXA [Concomitant]

REACTIONS (8)
  - CHILLS [None]
  - DEHYDRATION [None]
  - DIARRHOEA [None]
  - HYPOTENSION [None]
  - PYREXIA [None]
  - SINUS HEADACHE [None]
  - SYNCOPE [None]
  - URINARY TRACT INFECTION [None]
